FAERS Safety Report 6306436-6 (Version None)
Quarter: 2009Q3

REPORT INFORMATION
  Report Type: 
  Country: None (occurrence: None)
  Receive Date: 20090812
  Receipt Date: 20090731
  Transmission Date: 20100115
  Serious: Yes (Hospitalization)
  Sender: FDA-Public Use
  Company Number: US-ELI_LILLY_AND_COMPANY-US200810004159

PATIENT
  Sex: Female

DRUGS (8)
  1. FORTEO [Suspect]
     Indication: OSTEOPOROSIS
     Dosage: UNK, UNK
     Dates: start: 20070301
  2. FORTEO [Suspect]
  3. PERCOCET [Concomitant]
  4. PREVACID [Concomitant]
  5. PLAVIX [Concomitant]
  6. ISORDIL [Concomitant]
  7. ASPIRIN [Concomitant]
  8. OXYGEN [Concomitant]
     Dates: start: 20040101

REACTIONS (8)
  - CHOKING [None]
  - CHRONIC OBSTRUCTIVE PULMONARY DISEASE [None]
  - DRUG ADMINISTRATION ERROR [None]
  - DYSPNOEA [None]
  - EMBOLISM [None]
  - FALL [None]
  - GASTRIC HAEMORRHAGE [None]
  - HAEMOPTYSIS [None]
